FAERS Safety Report 5729542 (Version 7)
Quarter: 2012Q4

REPORT INFORMATION
  Report Type: 
  Country: FR (occurrence: FR)
  Receive Date: 20050204
  Receipt Date: 20120925
  Transmission Date: 20130627
  Serious: Yes (Hospitalization, Other)
  Sender: FDA-Public Use
  Company Number: FR-JNJFOC-20050105891

PATIENT
  Age: 8 Year
  Sex: Female
  Weight: 24 kg

DRUGS (24)
  1. REMICADE [Suspect]
     Indication: IRIDOCYCLITIS
     Route: 042
     Dates: start: 200410, end: 200410
  2. REMICADE [Suspect]
     Indication: IRIDOCYCLITIS
     Route: 042
     Dates: start: 200408, end: 200408
  3. REMICADE [Suspect]
     Indication: IRIDOCYCLITIS
     Route: 042
     Dates: start: 200407, end: 200407
  4. REMICADE [Suspect]
     Indication: IRIDOCYCLITIS
     Route: 042
     Dates: start: 200405, end: 200405
  5. REMICADE [Suspect]
     Indication: IRIDOCYCLITIS
     Route: 042
     Dates: start: 200403, end: 200403
  6. REMICADE [Suspect]
     Indication: IRIDOCYCLITIS
     Route: 042
     Dates: start: 200412, end: 200412
  7. REMICADE [Suspect]
     Indication: IRIDOCYCLITIS
     Route: 042
     Dates: start: 20050221, end: 20050221
  8. REMICADE [Suspect]
     Indication: IRIDOCYCLITIS
     Route: 042
  9. REMICADE [Suspect]
     Indication: IRIDOCYCLITIS
     Route: 042
     Dates: start: 200402, end: 200402
  10. REMICADE [Suspect]
     Indication: IRIDOCYCLITIS
     Route: 042
     Dates: start: 200401, end: 200401
  11. REMICADE [Suspect]
     Indication: JUVENILE ARTHRITIS
     Route: 042
     Dates: start: 200407, end: 200407
  12. REMICADE [Suspect]
     Indication: JUVENILE ARTHRITIS
     Route: 042
     Dates: start: 20050221, end: 20050221
  13. REMICADE [Suspect]
     Indication: JUVENILE ARTHRITIS
     Route: 042
     Dates: start: 200412, end: 200412
  14. REMICADE [Suspect]
     Indication: JUVENILE ARTHRITIS
     Route: 042
     Dates: start: 200410, end: 200410
  15. REMICADE [Suspect]
     Indication: JUVENILE ARTHRITIS
     Route: 042
     Dates: start: 200408, end: 200408
  16. REMICADE [Suspect]
     Indication: JUVENILE ARTHRITIS
     Route: 042
  17. REMICADE [Suspect]
     Indication: JUVENILE ARTHRITIS
     Route: 042
     Dates: start: 200405, end: 200405
  18. REMICADE [Suspect]
     Indication: JUVENILE ARTHRITIS
     Route: 042
     Dates: start: 200403, end: 200403
  19. REMICADE [Suspect]
     Indication: JUVENILE ARTHRITIS
     Route: 042
     Dates: start: 200402, end: 200402
  20. REMICADE [Suspect]
     Indication: JUVENILE ARTHRITIS
     Route: 042
     Dates: start: 200401, end: 200401
  21. CORTANCYL [Concomitant]
     Indication: UVEITIS
     Route: 048
     Dates: start: 200204
  22. CALCIUM [Concomitant]
     Route: 048
  23. VEXOL [Concomitant]
     Indication: UVEITIS
     Route: 047
  24. GLUCONATE DE POTASSIUM [Concomitant]

REACTIONS (4)
  - Visceral leishmaniasis [Recovered/Resolved]
  - Pyrexia [Recovered/Resolved]
  - Pancytopenia [Recovered/Resolved]
  - Mucocutaneous leishmaniasis [Unknown]
